FAERS Safety Report 13049914 (Version 1)
Quarter: 2016Q4

REPORT INFORMATION
  Report Type: Report from Study
  Country: None (occurrence: US)
  Receive Date: 20161221
  Receipt Date: 20161221
  Transmission Date: 20170207
  Serious: No
  Sender: FDA-Public Use
  Company Number: US-BIOVITRUM-2016US0053

PATIENT
  Age: 59 Year
  Sex: Female

DRUGS (2)
  1. METHOTREXATE. [Concomitant]
     Active Substance: METHOTREXATE
  2. KINERET [Suspect]
     Active Substance: ANAKINRA
     Dosage: DAILY
     Route: 058
     Dates: start: 20160115

REACTIONS (3)
  - Injection site inflammation [Recovering/Resolving]
  - Urticaria [Recovering/Resolving]
  - Weight increased [Unknown]

NARRATIVE: CASE EVENT DATE: 20160115
